FAERS Safety Report 5944950-3 (Version None)
Quarter: 2008Q4

REPORT INFORMATION
  Report Type: 
  Country: None (occurrence: None)
  Receive Date: 20081107
  Receipt Date: 20081029
  Transmission Date: 20090506
  Serious: Yes (Death)
  Sender: FDA-Public Use
  Company Number: JP-ABBOTT-08P-087-0485915-00

PATIENT
  Age: 76 Year
  Sex: Male

DRUGS (2)
  1. LEUPROLIDE ACETATE [Suspect]
     Indication: PROSTATE CANCER
     Route: 058
     Dates: start: 20060705, end: 20080430
  2. BICALUTAMIDE [Concomitant]
     Indication: PROSTATE CANCER
     Route: 048

REACTIONS (1)
  - LUNG NEOPLASM MALIGNANT [None]
